FAERS Safety Report 14394444 (Version 1)
Quarter: 2018Q1

REPORT INFORMATION
  Report Type: Spontaneous
  Country: US (occurrence: US)
  Receive Date: 20180116
  Receipt Date: 20180116
  Transmission Date: 20180509
  Serious: Yes (Other)
  Sender: FDA-Public Use
  Company Number: US-REGENERON PHARMACEUTICALS, INC.-2017-24728

PATIENT

DRUGS (2)
  1. EYLEA [Suspect]
     Active Substance: AFLIBERCEPT
     Indication: DRY AGE-RELATED MACULAR DEGENERATION
     Dosage: 2 MG, MONTHLY, OS
     Route: 031
     Dates: start: 20170913
  2. EYLEA [Suspect]
     Active Substance: AFLIBERCEPT
     Dosage: 2 MG, ONCE, OS, LAST DOSE
     Route: 031
     Dates: start: 20171017, end: 20171017

REACTIONS (2)
  - Off label use [Unknown]
  - Retinal pigment epithelial tear [Recovered/Resolved]

NARRATIVE: CASE EVENT DATE: 20170913
